FAERS Safety Report 6569566-X (Version None)
Quarter: 2010Q1

REPORT INFORMATION
  Report Type: 
  Country: None (occurrence: None)
  Receive Date: 20100204
  Receipt Date: 20100125
  Transmission Date: 20100710
  Serious: Yes (Hospitalization, Other)
  Sender: FDA-Public Use
  Company Number: GB-BAYER-200912732GPV

PATIENT
  Age: 34 Year
  Sex: Female

DRUGS (4)
  1. LEVONORGESTREL IUS [Suspect]
     Indication: CONTRACEPTION
     Route: 015
  2. LEVONORGESTREL IUS [Suspect]
     Route: 015
  3. CIPROFLAXACIN [Suspect]
     Indication: URINARY TRACT INFECTION
     Route: 065
  4. CEFUROXIME [Suspect]
     Indication: URINARY TRACT INFECTION
     Route: 065

REACTIONS (10)
  - ABDOMINAL PAIN LOWER [None]
  - AMENORRHOEA [None]
  - DEVICE DISLOCATION [None]
  - NAUSEA [None]
  - STAPHYLOCOCCAL SEPSIS [None]
  - SUPRAPUBIC PAIN [None]
  - TREATMENT FAILURE [None]
  - URINARY TRACT INFECTION [None]
  - UTERINE PERFORATION [None]
  - VOMITING [None]
